FAERS Safety Report 10736912 (Version 1)
Quarter: 2015Q1

REPORT INFORMATION
  Report Type: Spontaneous
  Country: US (occurrence: None)
  Receive Date: 20150112
  Receipt Date: 20150112
  Transmission Date: 20150721
  Serious: Yes (Hospitalization, Other)
  Sender: FDA-Public Use
  Company Number: 1426988

PATIENT
  Age: 59 Year
  Sex: Male

DRUGS (2)
  1. PRADAXA [Suspect]
     Active Substance: DABIGATRAN ETEXILATE MESYLATE
     Indication: ATRIAL FIBRILLATION
     Dosage: (150 MG, 2 IN 1 D)
     Route: 048
  2. ALTEPLASE (ALTEPLASE) (INFUSION, SOLUTION) [Suspect]
     Active Substance: ALTEPLASE
     Indication: CEREBRAL INFARCTION

REACTIONS (1)
  - Cerebral infarction [None]
